FAERS Safety Report 21947145 (Version 2)
Quarter: 2023Q1

REPORT INFORMATION
  Report Type: Report from Study
  Country: TH (occurrence: TH)
  Receive Date: 20230202
  Receipt Date: 20230303
  Transmission Date: 20230418
  Serious: Yes (Other)
  Sender: FDA-Public Use
  Company Number: TH-BAYER-2023A011061

PATIENT
  Age: 60 Year
  Sex: Male

DRUGS (2)
  1. NEXAVAR [Suspect]
     Active Substance: SORAFENIB
     Indication: Hepatocellular carcinoma
     Dosage: 800 MG QD
     Dates: start: 20220711
  2. NEXAVAR [Suspect]
     Active Substance: SORAFENIB
     Indication: Hepatocellular carcinoma
     Dosage: 200 MG, QD FOR 2 DAYS AND 1 DAY OFF
     Dates: start: 202302

REACTIONS (4)
  - Hepatocellular carcinoma [None]
  - Gait inability [None]
  - Pain in extremity [None]
  - Off label use [None]
